FAERS Safety Report 4290247-X (Version None)
Quarter: 2004Q1

REPORT INFORMATION
  Report Type: 
  Country: None (occurrence: None)
  Receive Date: 20040210
  Receipt Date: 20040202
  Transmission Date: 20041129
  Serious: Yes (Other)
  Sender: FDA-Public Use
  Company Number: PHEH2004US01553

PATIENT
  Sex: Female

DRUGS (3)
  1. DIOVAN HCT [Suspect]
     Dosage: VAL 160 MG/ HCT 25 MG
     Route: 048
  2. TOPROL-XL [Concomitant]
  3. NORVASC [Concomitant]

REACTIONS (2)
  - EYE DISORDER [None]
  - THROMBOSIS [None]
